FAERS Safety Report 16366428 (Version 1)
Quarter: 2019Q2

REPORT INFORMATION
  Report Type: Spontaneous
  Country: DE (occurrence: DE)
  Receive Date: 20190529
  Receipt Date: 20190529
  Transmission Date: 20190711
  Serious: Yes (Hospitalization, Other)
  Sender: FDA-Public Use
  Company Number: DE-TEVA-2019-DE-1054066

PATIENT
  Age: 83 Year
  Sex: Female

DRUGS (8)
  1. MOXONIDIN 0,2 MG [Suspect]
     Active Substance: MOXONIDINE
     Route: 065
  2. URAPIDIL 30MG [Suspect]
     Active Substance: URAPIDIL
     Dosage: 60 MILLIGRAM DAILY; 1-1-0
     Route: 065
  3. LERCANIDIPINE ABZ 10MG [Suspect]
     Active Substance: LERCANIDIPINE
     Route: 065
  4. EXFORGE [Suspect]
     Active Substance: AMLODIPINE BESYLATE\VALSARTAN
     Route: 065
     Dates: start: 2016
  5. ASS 100 [Suspect]
     Active Substance: ASPIRIN
     Route: 065
  6. METAHEXAL SUCCINATE 47,5 MG [Suspect]
     Active Substance: METOPROLOL
     Route: 065
  7. URAPIDIL 30MG [Suspect]
     Active Substance: URAPIDIL
     Dosage: 0-0-1
  8. DILTIAZEM AL 0,2 MG [Suspect]
     Active Substance: DILTIAZEM
     Route: 065

REACTIONS (16)
  - Eye discharge [Unknown]
  - Pulse abnormal [Unknown]
  - Sneezing [Unknown]
  - Angina pectoris [Unknown]
  - Circulatory collapse [Unknown]
  - Pruritus [Unknown]
  - Blood pressure fluctuation [Unknown]
  - Sensory disturbance [Unknown]
  - Skin exfoliation [Unknown]
  - Tremor [Unknown]
  - Headache [Unknown]
  - Hot flush [Unknown]
  - Lid margin discharge [Unknown]
  - Dandruff [Unknown]
  - Pruritus [Unknown]
  - Skin exfoliation [Unknown]

NARRATIVE: CASE EVENT DATE: 2016
